FAERS Safety Report 5014826-7 (Version None)
Quarter: 2006Q2

REPORT INFORMATION
  Report Type: 
  Country: None (occurrence: None)
  Receive Date: 20060419
  Receipt Date: 20050830
  Transmission Date: 20061013
  Serious: Yes (Hospitalization, Other)
  Sender: FDA-Public Use
  Company Number: 2005-03227

PATIENT
  Age: 34 Year
  Sex: Female

DRUGS (4)
  1. FERRLECIT [Suspect]
     Indication: ANAEMIA
     Dosage: SEE IMAGE
     Route: 042
     Dates: start: 20050810, end: 20050810
  2. FERRLECIT [Suspect]
     Indication: ANAEMIA
     Dosage: SEE IMAGE
     Route: 042
     Dates: start: 20050811, end: 20050811
  3. IRON (IRON) [Concomitant]
  4. SOLU-CORTEF [Concomitant]

REACTIONS (7)
  - ANAPHYLACTIC REACTION [None]
  - DROOLING [None]
  - DYSPNOEA [None]
  - HYPOAESTHESIA [None]
  - HYPOAESTHESIA ORAL [None]
  - LARYNGEAL OEDEMA [None]
  - SWELLING FACE [None]
